FAERS Safety Report 4378083-7 (Version None)
Quarter: 2004Q2

REPORT INFORMATION
  Report Type: 
  Country: None (occurrence: None)
  Receive Date: 20040609
  Receipt Date: 20040519
  Transmission Date: 20050107
  Serious: Yes (Death, Life-Threatening, Hospitalization)
  Sender: FDA-Public Use
  Company Number: EWC040539366

PATIENT
  Age: 65 Year
  Sex: Female

DRUGS (6)
  1. GEMCITABINE HYDROCHLORIDE-IV (GEMCITABINE) [Suspect]
     Indication: OVARIAN CANCER
     Dosage: 1100 MG/1 WEEK
     Route: 042
     Dates: start: 20040116
  2. DOXORUBICIN [Concomitant]
  3. INTERFERON GAMMA-1B [Concomitant]
  4. CARBOPLATIN [Concomitant]
  5. PACLITAXEL [Concomitant]
  6. INDAPAMIDE [Concomitant]

REACTIONS (5)
  - ILEUS [None]
  - INTESTINAL OBSTRUCTION [None]
  - MALIGNANT NEOPLASM PROGRESSION [None]
  - METASTASES TO ABDOMINAL CAVITY [None]
  - OVARIAN CANCER [None]
